FAERS Safety Report 25743816 (Version 3)
Quarter: 2025Q3

REPORT INFORMATION
  Report Type: Spontaneous
  Country: EU (occurrence: EU)
  Receive Date: 20250831
  Receipt Date: 20250912
  Transmission Date: 20251021
  Serious: Yes (Hospitalization, Other)
  Sender: ABBVIE
  Company Number: EU-ALLERGAN-1644092

PATIENT
  Age: 19 Year
  Sex: Male

DRUGS (2)
  1. MESALAMINE [Suspect]
     Active Substance: MESALAMINE
     Indication: Crohn^s disease
     Route: 048
  2. ENTOCORT [Concomitant]
     Active Substance: BUDESONIDE
     Indication: Crohn^s disease
     Dosage: 9 MG, DAILY
     Dates: start: 20120909

REACTIONS (1)
  - Hypersensitivity myocarditis [Recovered/Resolved]

NARRATIVE: CASE EVENT DATE: 20120926
